FAERS Safety Report 9630912 (Version 4)
Quarter: 2014Q2

REPORT INFORMATION
  Report Type: Spontaneous
  Country: US (occurrence: US)
  Receive Date: 20131018
  Receipt Date: 20140627
  Transmission Date: 20141212
  Serious: Yes (Hospitalization, Disabling, Other)
  Sender: FDA-Public Use
  Company Number: US-PFIZER INC-2013297319

PATIENT
  Age: 60 Year
  Sex: Female
  Weight: 99 kg

DRUGS (23)
  1. LIPITOR [Suspect]
     Indication: LOW DENSITY LIPOPROTEIN INCREASED
     Dosage: 40 MG, DAILY (AT BED TIME)
     Route: 048
     Dates: start: 2011, end: 2013
  2. LIPITOR [Suspect]
     Indication: CARDIOVASCULAR EVENT PROPHYLAXIS
  3. ATORVASTATIN CALCIUM [Suspect]
     Indication: BLOOD CHOLESTEROL INCREASED
     Dosage: 40 MG, DAILY
     Route: 048
     Dates: start: 2012
  4. DUONEB [Concomitant]
     Dosage: EVERY 4 HRS AS NEEDED
  5. COMBIVENT [Concomitant]
     Dosage: 2 DF(PUFFS), EVERY 4 HRS AS NEEDED
  6. ASPIRIN [Concomitant]
     Dosage: 81 MG, DAILY
     Route: 048
  7. BETAMETHASONE-CLOTRIMAZOLE [Concomitant]
     Dosage: 1 DF, 2X/DAY
     Route: 061
  8. SYMBICORT [Concomitant]
     Dosage: 2 DF (PUFFS), 2X/DAY
  9. BUPROPION [Concomitant]
     Indication: DEPRESSION
     Dosage: 150 MG, 2X/DAY
     Route: 048
  10. BUPROPION [Concomitant]
     Indication: SMOKING CESSATION THERAPY
  11. CYCLOBENZAPRINE [Concomitant]
     Indication: MUSCLE SPASMS
     Dosage: 10 MG, 3X/DAY (AS NEEDED )
     Route: 048
  12. ESCITALOPRAM [Concomitant]
     Dosage: 20 MG, DAILY
     Route: 048
  13. NEXIUM [Concomitant]
     Indication: DYSPEPSIA
     Dosage: 40 MG, DAILY
     Route: 048
     Dates: start: 2007
  14. FENOFIBRATE [Concomitant]
     Dosage: 200 MG, DAILY
     Route: 048
  15. HYDROCHLOROTHIAZIDE [Concomitant]
     Dosage: 25 MG, DAILY
     Route: 048
  16. IMDUR [Concomitant]
     Dosage: 60 MG, DAILY
     Route: 048
  17. LISINOPRIL [Concomitant]
     Indication: CARDIOVASCULAR DISORDER
     Dosage: 20 MG, DAILY (EVERY NIGHT)
     Route: 048
     Dates: start: 2007, end: 2014
  18. ATIVAN [Concomitant]
     Indication: ANXIETY
     Dosage: 1 MG, 3X/DAY AS NEEDED
     Route: 048
  19. METOPROLOL [Concomitant]
     Dosage: 25 MG, 2X/DAY
     Route: 048
  20. AVELOX [Concomitant]
     Dosage: 400 MG, DAILY
     Route: 048
  21. PREDNISONE [Concomitant]
     Dosage: TAPER DAILY FOR 10 DAYS
  22. SPIRIVA [Concomitant]
     Dosage: 18 UG, DAILY
  23. HIGH B COMPLEX [Concomitant]
     Dosage: 1 DF, DAILY
     Route: 048

REACTIONS (4)
  - Type 2 diabetes mellitus [Not Recovered/Not Resolved]
  - Fall [Unknown]
  - Head injury [Unknown]
  - Amnesia [Unknown]
